FAERS Safety Report 8628467 (Version 14)
Quarter: 2017Q1

REPORT INFORMATION
  Report Type: Report from Study
  Country: US (occurrence: US)
  Receive Date: 20120621
  Receipt Date: 20170119
  Transmission Date: 20170429
  Serious: Yes (Other)
  Sender: FDA-Public Use
  Company Number: US-ROCHE-1076240

PATIENT

DRUGS (2)
  1. TOCILIZUMAB [Suspect]
     Active Substance: TOCILIZUMAB
     Indication: RHEUMATOID ARTHRITIS
     Route: 065
  2. RITUXIMAB [Suspect]
     Active Substance: RITUXIMAB
     Indication: RHEUMATOID ARTHRITIS
     Route: 065

REACTIONS (7)
  - Urinary tract infection [Unknown]
  - Bursitis infective [Unknown]
  - Neoplasm malignant [Unknown]
  - Infection [Unknown]
  - Sinusitis [Unknown]
  - Cardiovascular disorder [Unknown]
  - Upper respiratory tract infection [Unknown]
